FAERS Safety Report 25680653 (Version 1)
Quarter: 2025Q3

REPORT INFORMATION
  Report Type: Spontaneous
  Country: CA (occurrence: CA)
  Receive Date: 20250814
  Receipt Date: 20250814
  Transmission Date: 20251021
  Serious: Yes (Other)
  Sender: CELLTRION
  Company Number: CA-CELLTRION INC.-2025CA027391

PATIENT

DRUGS (21)
  1. INFLIXIMAB [Suspect]
     Active Substance: INFLIXIMAB
     Indication: Crohn^s disease
     Route: 042
  2. INFLIXIMAB [Suspect]
     Active Substance: INFLIXIMAB
     Route: 042
  3. INFLIXIMAB [Suspect]
     Active Substance: INFLIXIMAB
     Route: 042
  4. INFLIXIMAB [Suspect]
     Active Substance: INFLIXIMAB
     Route: 042
  5. INFLIXIMAB [Suspect]
     Active Substance: INFLIXIMAB
     Route: 042
  6. INFLIXIMAB [Suspect]
     Active Substance: INFLIXIMAB
     Route: 042
  7. INFLIXIMAB [Suspect]
     Active Substance: INFLIXIMAB
     Route: 042
  8. INFLIXIMAB [Suspect]
     Active Substance: INFLIXIMAB
     Route: 042
  9. INFLIXIMAB [Suspect]
     Active Substance: INFLIXIMAB
     Route: 042
  10. INFLIXIMAB [Suspect]
     Active Substance: INFLIXIMAB
     Route: 042
  11. INFLIXIMAB [Suspect]
     Active Substance: INFLIXIMAB
     Route: 042
  12. INFLIXIMAB [Suspect]
     Active Substance: INFLIXIMAB
     Route: 042
  13. CAL D [CALCIUM CARBONATE;COLECALCIFEROL] [Concomitant]
     Route: 048
  14. CANDESARTAN [Concomitant]
     Active Substance: CANDESARTAN
     Route: 048
  15. CANDESARTAN [Concomitant]
     Active Substance: CANDESARTAN
     Route: 048
  16. CITALOPRAM [Concomitant]
     Active Substance: CITALOPRAM
     Route: 048
  17. CITALOPRAM [Concomitant]
     Active Substance: CITALOPRAM
     Route: 048
  18. NIFEDIPINE [Concomitant]
     Active Substance: NIFEDIPINE
     Route: 048
  19. NIFEDIPINE [Concomitant]
     Active Substance: NIFEDIPINE
     Route: 048
  20. PREDNISONE [Concomitant]
     Active Substance: PREDNISONE
     Route: 065
  21. PREDNISONE [Concomitant]
     Active Substance: PREDNISONE
     Route: 065

REACTIONS (6)
  - Condition aggravated [Not Recovered/Not Resolved]
  - Nasal congestion [Not Recovered/Not Resolved]
  - Abdominal wall abscess [Not Recovered/Not Resolved]
  - Abscess [Not Recovered/Not Resolved]
  - Arthralgia [Not Recovered/Not Resolved]
  - Drug ineffective [Not Recovered/Not Resolved]
